FAERS Safety Report 20303018 (Version 3)
Quarter: 2022Q1

REPORT INFORMATION
  Report Type: Other
  Country: IN (occurrence: None)
  Receive Date: 20220106
  Receipt Date: 20220121
  Transmission Date: 20220424
  Serious: Yes (Other)
  Sender: FDA-Public Use
  Company Number: IN-ROCHE-2832648

PATIENT
  Age: 50 Year
  Sex: Female

DRUGS (1)
  1. PERJETA [Suspect]
     Active Substance: PERTUZUMAB
     Indication: HER2 positive breast cancer
     Route: 042
     Dates: start: 20200212

REACTIONS (4)
  - Swelling [Unknown]
  - Cerebral disorder [Unknown]
  - Cough [Unknown]
  - Nasopharyngitis [Unknown]
